FAERS Safety Report 9155010 (Version 2)
Quarter: 2013Q1

REPORT INFORMATION
  Report Type: Spontaneous
  Country: IL (occurrence: None)
  Receive Date: 20130208
  Receipt Date: 20130219
  Transmission Date: 20140127
  Serious: Yes (Hospitalization)
  Sender: FDA-Public Use
  Company Number: 2013-0146

PATIENT
  Age: 73 Year
  Sex: Female
  Weight: 59.4 kg

DRUGS (13)
  1. CARFILZOMIB [Suspect]
     Indication: PLASMA CELL MYELOMA
     Dosage: 9.3714 MG (32.8 MG, DAYS 1, 2), INTRAVENOUS
     Route: 042
     Dates: start: 20120819, end: 20120820
  2. VITAMIN D [Concomitant]
  3. LANTON [Concomitant]
  4. DEXAMETHASONE (DEXAMETHASONE) (DEXAMETHASONE) [Concomitant]
  5. CALCIUM (CALCIUM) (CALCIUM) [Concomitant]
  6. ELATROLET (AMITROPTYLINE) (AMITRIPTYLINE) [Concomitant]
  7. PROBIOTIC [Concomitant]
  8. MAGNESIUM CITRATE (MAGNESIUM CITRATE) [Concomitant]
  9. VITAMIN B (VITAMIN B COMPLEX) [Concomitant]
  10. ACYCLOVIR (ACICLOVIR) (ACICLOVIR) [Concomitant]
  11. FUSID (FUROSEMIDE) (FUROSEMIDE) [Concomitant]
  12. ZALDIAR (PARACETAMOL) (PARACETAMOL) [Concomitant]
  13. ENALADEX (ENALAPRIL MALEATE) (ENALAPRIL MALEATE) [Concomitant]

REACTIONS (1)
  - Pulmonary congestion [None]
